FAERS Safety Report 4713418-4 (Version None)
Quarter: 2005Q3

REPORT INFORMATION
  Report Type: 
  Country: None (occurrence: None)
  Receive Date: 20050711
  Receipt Date: 20050622
  Transmission Date: 20060218
  Serious: Yes (Hospitalization)
  Sender: FDA-Public Use
  Company Number: 213802

PATIENT
  Age: 34 Year
  Sex: Male

DRUGS (4)
  1. MABTHERA                     (RITUXIMAB) [Suspect]
     Indication: LYMPHOMA
     Dosage: 375 MG/M2, INTRAVENOUS
     Route: 042
     Dates: start: 20040504, end: 20040504
  2. MABTHERA                     (RITUXIMAB) [Suspect]
     Indication: LYMPHOMA
     Dosage: 375 MG/M2, INTRAVENOUS
     Route: 042
     Dates: start: 20040629, end: 20040629
  3. MABTHERA                     (RITUXIMAB) [Suspect]
     Indication: LYMPHOMA
     Dosage: 375 MG/M2, INTRAVENOUS
     Route: 042
     Dates: start: 20040824, end: 20040824
  4. MABTHERA                     (RITUXIMAB) [Suspect]
     Indication: LYMPHOMA
     Dosage: 375 MG/M2, INTRAVENOUS
     Route: 042
     Dates: start: 20041019, end: 20041019

REACTIONS (1)
  - PNEUMOCYSTIS JIROVECI PNEUMONIA [None]
